FAERS Safety Report 23099993 (Version 1)
Quarter: 2023Q4

REPORT INFORMATION
  Report Type: Spontaneous
  Country: US (occurrence: None)
  Receive Date: 20231023
  Receipt Date: 20231023
  Transmission Date: 20240110
  Serious: Yes (Hospitalization)
  Sender: FDA-Public Use
  Company Number: None

PATIENT
  Age: 42 Year
  Sex: Male
  Weight: 79.1 kg

DRUGS (1)
  1. YESCARTA [Suspect]
     Active Substance: AXICABTAGENE CILOLEUCEL
     Indication: High-grade B-cell lymphoma
     Dosage: OTHER FREQUENCY : ONCE;?
     Route: 042
     Dates: start: 20230911, end: 20230911

REACTIONS (12)
  - Pyrexia [None]
  - Infection [None]
  - Neutropenia [None]
  - Cytokine release syndrome [None]
  - Immune effector cell-associated neurotoxicity syndrome [None]
  - Unresponsive to stimuli [None]
  - Haemoglobin increased [None]
  - Abdominal pain [None]
  - Abdominal distension [None]
  - Diarrhoea [None]
  - Neutrophil count decreased [None]
  - Fall [None]

NARRATIVE: CASE EVENT DATE: 20230913
